FAERS Safety Report 6203204-0 (Version None)
Quarter: 2009Q2

REPORT INFORMATION
  Report Type: 
  Country: None (occurrence: None)
  Receive Date: 20090521
  Receipt Date: 20090506
  Transmission Date: 20091009
  Serious: Yes (Other)
  Sender: FDA-Public Use
  Company Number: 2009EU001889

PATIENT
  Age: 60 Year
  Sex: Female
  Weight: 69 kg

DRUGS (2)
  1. VESICARE [Suspect]
     Indication: MICTURITION URGENCY
     Dosage: 5 MG, /D, ORAL
     Route: 048
     Dates: start: 20080804
  2. LANSOPRAZOLE [Concomitant]

REACTIONS (4)
  - CONSTIPATION [None]
  - DRUG INTOLERANCE [None]
  - HEADACHE [None]
  - NAUSEA [None]
